FAERS Safety Report 8218330-4 (Version None)
Quarter: 2012Q1

REPORT INFORMATION
  Report Type: 
  Country: None (occurrence: None)
  Receive Date: 20120319
  Receipt Date: 20120313
  Transmission Date: 20120608
  Serious: Yes (Other)
  Sender: FDA-Public Use
  Company Number: US-GLAXOSMITHKLINE-A0923792A

PATIENT
  Sex: Male

DRUGS (4)
  1. LISINOPRIL [Concomitant]
  2. DILTIAZEM HCL [Concomitant]
  3. GLIPIZIDE [Concomitant]
     Dates: start: 20100203
  4. AVANDIA [Suspect]
     Indication: DIABETES MELLITUS
     Dosage: 2MG PER DAY
     Route: 048
     Dates: start: 20050101, end: 20100203

REACTIONS (5)
  - MYOCARDIAL ISCHAEMIA [None]
  - CORONARY ARTERY STENOSIS [None]
  - INJURY [None]
  - ANGINA UNSTABLE [None]
  - CORONARY ARTERY OCCLUSION [None]
